FAERS Safety Report 21406988 (Version 1)
Quarter: 2022Q4

REPORT INFORMATION
  Report Type: Spontaneous
  Country: PL (occurrence: PL)
  Receive Date: 20221004
  Receipt Date: 20221004
  Transmission Date: 20230113
  Serious: Yes (Death, Hospitalization)
  Sender: FDA-Public Use
  Company Number: PL-MYLANLABS-2022M1110584

PATIENT
  Age: 82 Year
  Sex: Male

DRUGS (21)
  1. INSULIN GLARGINE [Suspect]
     Active Substance: INSULIN GLARGINE
     Indication: Hyperglycaemia
     Dosage: UNK
     Route: 042
     Dates: start: 202107
  2. POTASSIUM [Suspect]
     Active Substance: POTASSIUM
     Indication: Mineral supplementation
     Dosage: UNK
     Route: 042
     Dates: start: 202107
  3. POTASSIUM [Suspect]
     Active Substance: POTASSIUM
     Indication: Hypokalaemia
  4. SODIUM BICARBONATE [Suspect]
     Active Substance: SODIUM BICARBONATE
     Indication: Type 2 diabetes mellitus
     Dosage: 160 MILLIEQUIVALENT
     Route: 042
     Dates: start: 202107
  5. SODIUM BICARBONATE [Suspect]
     Active Substance: SODIUM BICARBONATE
     Dosage: 20 MILLIEQUIVALENT (IN 500ML CRYSTALLOID)
     Route: 042
  6. NOREPINEPHRINE BITARTRATE [Suspect]
     Active Substance: NOREPINEPHRINE BITARTRATE
     Indication: Cardiovascular disorder
     Dosage: UNK, INFUSION
     Route: 065
     Dates: start: 202107
  7. GLUCOPHAGE [Concomitant]
     Active Substance: METFORMIN HYDROCHLORIDE
     Indication: Type 2 diabetes mellitus
     Dosage: 500 MILLIGRAM, BID
     Route: 065
  8. Pyralgin [Concomitant]
     Indication: Pyrexia
     Dosage: UNK
     Route: 065
     Dates: start: 202107
  9. TRIFAS COR [Concomitant]
     Indication: Hypertension
     Dosage: UNK
     Route: 065
  10. PERINDOPRIL [Concomitant]
     Active Substance: PERINDOPRIL
     Indication: Hypertension
     Dosage: UNK
     Route: 065
  11. ATORVASTATIN [Concomitant]
     Active Substance: ATORVASTATIN
     Indication: Coronary artery disease
     Dosage: UNK
     Route: 065
  12. NEBIVOLOL [Concomitant]
     Active Substance: NEBIVOLOL
     Indication: Hypertension
     Dosage: UNK
     Route: 065
  13. Relanium [Concomitant]
     Indication: Agitation
     Dosage: UNK
     Route: 065
     Dates: start: 202107
  14. METOCLOPRAMIDE [Concomitant]
     Active Substance: METOCLOPRAMIDE
     Indication: Vomiting
     Dosage: UNK
     Route: 065
     Dates: start: 202107
  15. ONDANSETRON [Concomitant]
     Active Substance: ONDANSETRON
     Indication: Vomiting
     Dosage: UNK
     Route: 065
     Dates: start: 202107
  16. AUGMENTIN [Concomitant]
     Active Substance: AMOXICILLIN\CLAVULANATE POTASSIUM
     Indication: Product used for unknown indication
     Dosage: UNK
     Route: 065
     Dates: start: 202107
  17. FRAGMIN [Concomitant]
     Active Substance: DALTEPARIN SODIUM
     Indication: Anticoagulant therapy
     Dosage: UNK
     Route: 065
     Dates: start: 202107
  18. MIDAZOLAM HYDROCHLORIDE [Concomitant]
     Active Substance: MIDAZOLAM HYDROCHLORIDE
     Indication: Agitation
     Dosage: UNK
     Route: 065
     Dates: start: 202107
  19. FENTANYL [Concomitant]
     Active Substance: FENTANYL
     Indication: Endotracheal intubation
     Dosage: UNK
     Route: 065
     Dates: start: 202107
  20. PANCURONIUM [Concomitant]
     Active Substance: PANCURONIUM
     Indication: Endotracheal intubation
     Dosage: UNK
     Route: 065
     Dates: start: 202107
  21. GLICLAZIDE [Concomitant]
     Active Substance: GLICLAZIDE
     Indication: Type 2 diabetes mellitus
     Dosage: UNK
     Route: 065

REACTIONS (1)
  - Drug ineffective [Fatal]

NARRATIVE: CASE EVENT DATE: 20210701
